FAERS Safety Report 16714470 (Version 1)
Quarter: 2019Q3

REPORT INFORMATION
  Report Type: Spontaneous
  Country: US (occurrence: US)
  Receive Date: 20190819
  Receipt Date: 20190819
  Transmission Date: 20191004
  Serious: No
  Sender: FDA-Public Use
  Company Number: US-GLAXOSMITHKLINE-US2019AMR149201

PATIENT
  Sex: Female

DRUGS (2)
  1. TRANSDERM SCOP [Suspect]
     Active Substance: SCOPOLAMINE
     Indication: BALANCE DISORDER
     Dosage: UNK
     Dates: start: 20181012
  2. TRANSDERM SCOP [Suspect]
     Active Substance: SCOPOLAMINE
     Indication: DIZZINESS

REACTIONS (4)
  - Application site pruritus [Not Recovered/Not Resolved]
  - Product use in unapproved indication [Unknown]
  - Application site reaction [Not Recovered/Not Resolved]
  - Application site rash [Not Recovered/Not Resolved]
